FAERS Safety Report 6120382-2 (Version None)
Quarter: 2009Q1

REPORT INFORMATION
  Report Type: 
  Country: None (occurrence: None)
  Receive Date: 20090317
  Receipt Date: 20090304
  Transmission Date: 20090719
  Serious: Yes (Other)
  Sender: FDA-Public Use
  Company Number: DE-RANBAXY-2009RR-22413

PATIENT
  Age: 71 Year
  Sex: Male

DRUGS (1)
  1. CODEINE SUL TAB [Suspect]
     Dosage: 30 MG, QD
     Route: 048

REACTIONS (3)
  - CIRCULATORY COLLAPSE [None]
  - DIZZINESS [None]
  - NAUSEA [None]
